FAERS Safety Report 23232979 (Version 2)
Quarter: 2023Q4

REPORT INFORMATION
  Report Type: Spontaneous
  Country: GB (occurrence: None)
  Receive Date: 20231128
  Receipt Date: 20231225
  Transmission Date: 20240109
  Serious: Yes (Other)
  Sender: FDA-Public Use
  Company Number: GB-ROCHE-3460248

PATIENT
  Sex: Male

DRUGS (1)
  1. EVRYSDI [Suspect]
     Active Substance: RISDIPLAM
     Indication: Product used for unknown indication
     Route: 065
     Dates: start: 202105

REACTIONS (1)
  - Nephrolithiasis [Unknown]
